FAERS Safety Report 6176867-6 (Version None)
Quarter: 2009Q2

REPORT INFORMATION
  Report Type: 
  Country: None (occurrence: None)
  Receive Date: 20090501
  Receipt Date: 20081218
  Transmission Date: 20091009
  Serious: Yes (Hospitalization, Other)
  Sender: FDA-Public Use
  Company Number: US-ALEXION-A200800343

PATIENT
  Sex: Male

DRUGS (5)
  1. SOLIRIS [Suspect]
     Indication: PAROXYSMAL NOCTURNAL HAEMOGLOBINURIA
     Route: 042
     Dates: start: 20070101
  2. SOLIRIS [Suspect]
     Dosage: Q2W
     Route: 042
  3. VICODIN [Concomitant]
     Dosage: UNK, PRN
     Route: 048
  4. FOLIC ACID [Concomitant]
  5. IRON [Concomitant]

REACTIONS (7)
  - ANAEMIA [None]
  - AORTIC VALVE INCOMPETENCE [None]
  - BACTERIAL SEPSIS [None]
  - MENINGITIS BACTERIAL [None]
  - MOUTH ULCERATION [None]
  - PAIN [None]
  - TRICUSPID VALVE INCOMPETENCE [None]
